FAERS Safety Report 12134340 (Version 2)
Quarter: 2016Q1

REPORT INFORMATION
  Report Type: Report from Study
  Country: FR (occurrence: FR)
  Receive Date: 20160301
  Receipt Date: 20160302
  Transmission Date: 20160526
  Serious: Yes (Hospitalization, Other)
  Sender: FDA-Public Use
  Company Number: FR-BRISTOL-MYERS SQUIBB COMPANY-21342886

PATIENT
  Age: 37 Year
  Sex: Male
  Weight: 110 kg

DRUGS (2)
  1. ENTECAVIR. [Suspect]
     Active Substance: ENTECAVIR
     Indication: HEPATITIS B
     Dosage: 0.5 MG, QD
     Route: 065
     Dates: start: 200901
  2. DUPHALAC [Suspect]
     Active Substance: LACTULOSE
     Indication: PROPHYLAXIS
     Dosage: UNK
     Route: 065
     Dates: start: 2008

REACTIONS (7)
  - Chemical peritonitis [Unknown]
  - Hepatic failure [Unknown]
  - Liver transplant [Unknown]
  - Biliary fistula [Recovered/Resolved]
  - Laparotomy [Unknown]
  - Hepatocellular carcinoma [Recovered/Resolved with Sequelae]
  - Hepatic encephalopathy [Unknown]

NARRATIVE: CASE EVENT DATE: 201302
